FAERS Safety Report 14897724 (Version 3)
Quarter: 2020Q1

REPORT INFORMATION
  Report Type: Spontaneous
  Country: PL (occurrence: PL)
  Receive Date: 20180515
  Receipt Date: 20200210
  Transmission Date: 20200409
  Serious: Yes (Hospitalization, Other)
  Sender: FDA-Public Use
  Company Number: PL-MYLANLABS-2018M1031404

PATIENT
  Age: 24 Year
  Sex: Male

DRUGS (34)
  1. CISPLATIN. [Suspect]
     Active Substance: CISPLATIN
     Indication: TESTICULAR CANCER METASTATIC
     Dosage: UNK CYCLICAL
     Route: 065
  2. BLEOMYCIN [Suspect]
     Active Substance: BLEOMYCIN SULFATE
     Indication: METASTASES TO THE MEDIASTINUM
     Dosage: UNK
     Route: 065
  3. IFOSFAMIDE. [Suspect]
     Active Substance: IFOSFAMIDE
     Indication: TESTIS CANCER
  4. VITALIPID N [Concomitant]
     Active Substance: ERGOCALCIFEROL\PHYTONADIONE\TOCOPHEROL\VITAMIN A PALMITATE
     Indication: PRODUCT USED FOR UNKNOWN INDICATION
     Dosage: UNK
  5. SOLUVIT N                          /01591701/ [Concomitant]
     Active Substance: VITAMINS
     Indication: PRODUCT USED FOR UNKNOWN INDICATION
     Dosage: UNK
  6. VANCOMYCIN [Concomitant]
     Active Substance: VANCOMYCIN
     Indication: FEBRILE NEUTROPENIA
     Dosage: FULL DOSES
     Route: 065
  7. ETOPOSIDE. [Suspect]
     Active Substance: ETOPOSIDE
     Indication: TESTICULAR CANCER METASTATIC
     Dosage: UNK, CYCLE, DOSES ADEQUATE TO THE RENAL FUNCTION
     Route: 065
  8. ETOPOSIDE. [Suspect]
     Active Substance: ETOPOSIDE
     Indication: METASTASES TO THE MEDIASTINUM
     Dosage: ADEQUATE DOSES FOR RENAL FUNCTION
     Route: 065
  9. ETOPOSIDE. [Suspect]
     Active Substance: ETOPOSIDE
     Indication: TESTIS CANCER
     Dosage: 4 CYCLES
     Route: 065
  10. BLEOMYCIN [Suspect]
     Active Substance: BLEOMYCIN SULFATE
     Indication: TESTICULAR CANCER METASTATIC
     Dosage: ADEQUATE DOSES FOR RENAL FUNCTION
     Route: 065
  11. BLEOMYCIN [Suspect]
     Active Substance: BLEOMYCIN SULFATE
     Indication: METASTASES TO LUNG
     Dosage: FULL DOSES
     Route: 065
  12. CARBOPLATIN. [Suspect]
     Active Substance: CARBOPLATIN
     Indication: METASTASES TO THE MEDIASTINUM
     Dosage: UNK
     Route: 065
  13. PACLITAXEL. [Suspect]
     Active Substance: PACLITAXEL
     Indication: TESTIS CANCER
     Dosage: UNK, CYCLE
     Route: 065
     Dates: start: 20160901, end: 20161101
  14. PACLITAXEL. [Suspect]
     Active Substance: PACLITAXEL
     Indication: METASTASES TO THE MEDIASTINUM
     Dosage: ADEQUATE DOSES FOR RENAL FUNCTION
     Route: 065
  15. PACLITAXEL. [Suspect]
     Active Substance: PACLITAXEL
     Dosage: 4 CYCLES
     Route: 065
     Dates: start: 201609, end: 201611
  16. IFOSFAMIDE. [Suspect]
     Active Substance: IFOSFAMIDE
     Indication: METASTASES TO ABDOMINAL CAVITY
     Dosage: UNK
     Route: 065
  17. HEPARIN [Concomitant]
     Active Substance: HEPARIN SODIUM
     Dosage: UNK
     Route: 065
  18. ETOPOSIDE. [Suspect]
     Active Substance: ETOPOSIDE
     Dosage: 4 CYCLES
     Route: 065
  19. BLEOMYCIN [Suspect]
     Active Substance: BLEOMYCIN SULFATE
     Indication: TESTIS CANCER
     Dosage: BLEOMYCIN 15000 IU POWDER FOR SOLUTION FOR INJECTION/INFUSION OR INSTILLATIONUNK
     Route: 065
  20. IFOSFAMIDE. [Suspect]
     Active Substance: IFOSFAMIDE
     Indication: TESTICULAR CANCER METASTATIC
     Dosage: UNK, CYCLE
     Route: 065
     Dates: start: 20160901
  21. MEROPENEM. [Concomitant]
     Active Substance: MEROPENEM
     Indication: FEBRILE NEUTROPENIA
     Route: 065
  22. CARBOPLATIN. [Suspect]
     Active Substance: CARBOPLATIN
     Indication: TESTIS CANCER
     Dosage: UNK, CYCLE
     Route: 065
  23. ADDAMEL N                          /01793901/ [Concomitant]
     Active Substance: ELECTROLYTES NOS\MINERALS
     Indication: PRODUCT USED FOR UNKNOWN INDICATION
     Dosage: UNK
  24. KCL [Concomitant]
     Active Substance: POTASSIUM CHLORIDE
     Indication: PRODUCT USED FOR UNKNOWN INDICATION
     Dosage: 60 MEQ
     Route: 065
  25. CARBOPLATIN. [Suspect]
     Active Substance: CARBOPLATIN
     Indication: METASTASES TO ABDOMINAL CAVITY
  26. PACLITAXEL. [Suspect]
     Active Substance: PACLITAXEL
     Indication: METASTASES TO ABDOMINAL CAVITY
     Dosage: UNK
     Route: 065
  27. CISPLATIN. [Suspect]
     Active Substance: CISPLATIN
     Dosage: 4 CYCLES
     Route: 065
  28. PACLITAXEL. [Suspect]
     Active Substance: PACLITAXEL
     Indication: METASTASES TO LUNG
     Dosage: FULL DOSES
     Route: 065
  29. ETOPOSIDE. [Suspect]
     Active Substance: ETOPOSIDE
     Indication: METASTASES TO ABDOMINAL CAVITY
     Dosage: UNK
     Route: 065
  30. CISPLATIN. [Suspect]
     Active Substance: CISPLATIN
     Indication: METASTASES TO THE MEDIASTINUM
     Dosage: 4 CYCLICAL
     Route: 065
     Dates: start: 201609, end: 201611
  31. CISPLATIN. [Suspect]
     Active Substance: CISPLATIN
     Indication: TESTIS CANCER
     Dosage: UNK, CYCLE, ADEQUATE DOSES, TIP REGIMEN
     Route: 065
     Dates: end: 20161101
  32. BLEOMYCIN [Suspect]
     Active Substance: BLEOMYCIN SULFATE
     Indication: METASTASES TO THE MEDIASTINUM
     Dosage: 4 CYCLES
     Route: 065
  33. IFOSFAMIDE. [Suspect]
     Active Substance: IFOSFAMIDE
     Indication: METASTASES TO THE MEDIASTINUM
     Dosage: ADEQAUTE DOSES FOR RENAL FUNCTION
     Route: 065
  34. HEPARIN [Concomitant]
     Active Substance: HEPARIN SODIUM
     Indication: PRODUCT USED FOR UNKNOWN INDICATION
     Dosage: LOW MOLECULAR WEIGHT
     Route: 065

REACTIONS (9)
  - Thrombocytopenia [Unknown]
  - Off label use [Unknown]
  - Renal failure [Unknown]
  - Blood creatinine increased [Unknown]
  - Therapeutic product effect incomplete [Unknown]
  - Febrile neutropenia [Unknown]
  - Blood disorder [Unknown]
  - Anaemia [Unknown]
  - Disease progression [Recovering/Resolving]
